FAERS Safety Report 4551783-1 (Version None)
Quarter: 2005Q1

REPORT INFORMATION
  Report Type: 
  Country: None (occurrence: None)
  Receive Date: 20050111
  Receipt Date: 20041229
  Transmission Date: 20050727
  Serious: Yes (Death)
  Sender: FDA-Public Use
  Company Number: 2004AP02888

PATIENT
  Age: 73 Year
  Sex: Male

DRUGS (1)
  1. ACCOLATE [Suspect]
     Dosage: 20 MG DAILY PO
     Route: 048
     Dates: start: 20011228

REACTIONS (4)
  - ASTHMA [None]
  - DIABETES MELLITUS NON-INSULIN-DEPENDENT [None]
  - LIVER FUNCTION TEST ABNORMAL [None]
  - MALIGNANT HYPERTENSIVE HEART DISEASE [None]
